FAERS Safety Report 8232118-X (Version None)
Quarter: 2012Q1

REPORT INFORMATION
  Report Type: 
  Country: None (occurrence: None)
  Receive Date: 20120323
  Receipt Date: 20120320
  Transmission Date: 20120608
  Serious: Yes (Other)
  Sender: FDA-Public Use
  Company Number: US-PFIZER INC-2010129132

PATIENT
  Sex: Female
  Weight: 63.492 kg

DRUGS (3)
  1. WELLBUTRIN [Concomitant]
     Indication: DEPRESSION
     Dosage: 300 MG, 1X/DAY
     Route: 048
  2. LYRICA [Suspect]
     Indication: PAIN
     Dosage: 275 MG DAILY
     Dates: start: 20080501, end: 20091101
  3. SYNTHROID [Concomitant]
     Indication: GOITRE
     Dosage: 100 UG, 1X/DAY
     Route: 048

REACTIONS (5)
  - PAIN [None]
  - NERVOUSNESS [None]
  - INFLUENZA [None]
  - MALAISE [None]
  - WITHDRAWAL SYNDROME [None]
